FAERS Safety Report 10397453 (Version 1)
Quarter: 2014Q1

REPORT INFORMATION
  Report Type: Spontaneous
  Country: US (occurrence: None)
  Receive Date: 20130815
  Receipt Date: 20130815
  Transmission Date: 20141002
  Serious: Yes (Other)
  Sender: FDA-Public Use
  Company Number: ADR-2012-01697

PATIENT
  Sex: Female

DRUGS (1)
  1. GABLOFEN INTRATHECAL (BACLOFEN INJECTION) 2,000MCG/ML [Suspect]
     Dosage: 900+MCG/DAY

REACTIONS (1)
  - Muscle tightness [None]
